FAERS Safety Report 12110370 (Version 1)
Quarter: 2016Q1

REPORT INFORMATION
  Report Type: Spontaneous
  Country: US (occurrence: US)
  Receive Date: 20160224
  Receipt Date: 20160224
  Transmission Date: 20160526
  Serious: No
  Sender: FDA-Public Use
  Company Number: PHEH2016US004002

PATIENT
  Age: 47 Year
  Sex: Male
  Weight: 86.17 kg

DRUGS (1)
  1. GLEEVEC [Suspect]
     Active Substance: IMATINIB MESYLATE
     Indication: NEOPLASM MALIGNANT
     Dosage: 400 MG, QD
     Route: 048
     Dates: start: 20151028

REACTIONS (3)
  - Abscess oral [Recovering/Resolving]
  - Gingival pain [Recovering/Resolving]
  - Gingival swelling [Recovering/Resolving]

NARRATIVE: CASE EVENT DATE: 20160210
